FAERS Safety Report 7276172-0 (Version None)
Quarter: 2011Q1

REPORT INFORMATION
  Report Type: 
  Country: None (occurrence: None)
  Receive Date: 20110204
  Receipt Date: 20110131
  Transmission Date: 20110831
  Serious: Yes (Death, Hospitalization, Disabling, Other)
  Sender: FDA-Public Use
  Company Number: PHEH2007US02885

PATIENT
  Sex: Male

DRUGS (39)
  1. ASMANEX TWISTHALER [Concomitant]
  2. COMBIVENT                               /GFR/ [Concomitant]
  3. DIFLUCAN [Concomitant]
  4. SOLU-MEDROL [Concomitant]
     Dosage: 40 MG, Q6H
  5. ARIXTRA [Concomitant]
  6. LAPATINIB [Concomitant]
  7. PREDNISONE [Concomitant]
  8. ADVIL [Concomitant]
  9. CHANTIX [Concomitant]
  10. MEGACE [Concomitant]
     Dosage: 400 MG, BID
     Route: 048
  11. XANAX [Concomitant]
  12. NEURONTIN [Concomitant]
  13. DECADRON [Concomitant]
  14. CIPRO [Concomitant]
     Dosage: 750 MG, BID
     Route: 048
  15. PROTONIX [Concomitant]
  16. NICOTINE [Concomitant]
  17. FOLIC ACID [Concomitant]
  18. LASIX [Concomitant]
  19. THIAMINE [Concomitant]
  20. DURAGESIC-50 [Concomitant]
  21. XELODA [Suspect]
  22. NEXIUM [Concomitant]
  23. LORTAB [Concomitant]
  24. ROBITUSSIN ^WYETH^ [Concomitant]
  25. ZOMETA [Suspect]
     Dosage: UNK
     Dates: end: 20061101
  26. ZETIA [Concomitant]
  27. METHOTREXATE [Concomitant]
  28. FISH OIL [Concomitant]
  29. MULTI-VITAMINS [Concomitant]
  30. VITAMIN B COMPLEX [Concomitant]
  31. AMBIEN [Concomitant]
  32. CELEBREX [Concomitant]
  33. SPIRIVA [Concomitant]
  34. REGLAN [Concomitant]
     Dosage: 10 MG, BID
  35. ADVAIR [Concomitant]
  36. HERCEPTIN [Concomitant]
  37. DOXIL [Concomitant]
  38. TYLENOL-500 [Concomitant]
  39. XOPENEX [Concomitant]

REACTIONS (73)
  - LUNG INFILTRATION [None]
  - URINARY TRACT INFECTION [None]
  - SINUSITIS [None]
  - LEUKOPENIA [None]
  - ADRENAL INSUFFICIENCY [None]
  - TRICUSPID VALVE INCOMPETENCE [None]
  - NAUSEA [None]
  - GENERAL PHYSICAL HEALTH DETERIORATION [None]
  - RETROPERITONEAL LYMPHADENOPATHY [None]
  - PSEUDOMONAL SEPSIS [None]
  - RHEUMATOID ARTHRITIS [None]
  - ABDOMINAL PAIN [None]
  - TUMOUR MARKER INCREASED [None]
  - PAIN [None]
  - DECREASED INTEREST [None]
  - ATELECTASIS [None]
  - DIARRHOEA [None]
  - BRONCHIOLITIS [None]
  - ASTHMA [None]
  - PERIPHERAL VASCULAR DISORDER [None]
  - DYSPNOEA [None]
  - HYPERTENSION [None]
  - HYPOALBUMINAEMIA [None]
  - CHRONIC OBSTRUCTIVE PULMONARY DISEASE [None]
  - MITRAL VALVE INCOMPETENCE [None]
  - AMNESIA [None]
  - RENAL ATROPHY [None]
  - DEHYDRATION [None]
  - BURSITIS [None]
  - ASTHENIA [None]
  - GLUCOSE TOLERANCE IMPAIRED [None]
  - FATIGUE [None]
  - AORTIC VALVE INCOMPETENCE [None]
  - OEDEMA PERIPHERAL [None]
  - GASTRITIS [None]
  - ABDOMINAL HERNIA [None]
  - LEFT VENTRICULAR DYSFUNCTION [None]
  - WEIGHT DECREASED [None]
  - HAEMANGIOMA [None]
  - VOMITING [None]
  - CONSTIPATION [None]
  - OSTEONECROSIS OF JAW [None]
  - ANXIETY [None]
  - ARTHRALGIA [None]
  - COUGH [None]
  - PULMONARY EMBOLISM [None]
  - HAEMORRHOIDS [None]
  - OSTEOARTHROPATHY [None]
  - PALMAR-PLANTAR ERYTHRODYSAESTHESIA SYNDROME [None]
  - LUNG NEOPLASM [None]
  - HYPERCHOLESTEROLAEMIA [None]
  - INTERVERTEBRAL DISC DEGENERATION [None]
  - RHINITIS ALLERGIC [None]
  - OSTEOARTHRITIS [None]
  - HYPERPROTEINAEMIA [None]
  - INTERVERTEBRAL DISC PROTRUSION [None]
  - NEOPLASM MALIGNANT [None]
  - DEATH [None]
  - LYMPHADENOPATHY [None]
  - SCIATICA [None]
  - HYPOTENSION [None]
  - LOBAR PNEUMONIA [None]
  - POLYP COLORECTAL [None]
  - DERMAL CYST [None]
  - SPINAL OSTEOARTHRITIS [None]
  - PATHOLOGICAL FRACTURE [None]
  - MENTAL STATUS CHANGES [None]
  - EXOSTOSIS [None]
  - BENIGN PROSTATIC HYPERPLASIA [None]
  - PYREXIA [None]
  - PLEURAL EFFUSION [None]
  - METASTASES TO BONE [None]
  - RENAL MASS [None]
